FAERS Safety Report 21231641 (Version 1)
Quarter: 2022Q3

REPORT INFORMATION
  Report Type: Spontaneous
  Country: US (occurrence: US)
  Receive Date: 20220819
  Receipt Date: 20220819
  Transmission Date: 20221026
  Serious: No
  Sender: FDA-Public Use
  Company Number: US-ALLERGAN-2220539US

PATIENT
  Age: 39 Year
  Sex: Female

DRUGS (1)
  1. LASTACAFT [Suspect]
     Active Substance: ALCAFTADINE
     Indication: Seasonal allergy
     Dosage: 1 GTT
     Route: 047
     Dates: start: 202205

REACTIONS (4)
  - Eye inflammation [Unknown]
  - Ocular hyperaemia [Recovering/Resolving]
  - Hypersensitivity [Unknown]
  - Eye discharge [Unknown]

NARRATIVE: CASE EVENT DATE: 20220601
